FAERS Safety Report 25470883 (Version 1)
Quarter: 2025Q2

REPORT INFORMATION
  Report Type: Spontaneous
  Country: NZ (occurrence: NZ)
  Receive Date: 20250624
  Receipt Date: 20250624
  Transmission Date: 20250716
  Serious: Yes (Other)
  Sender: TAKEDA
  Company Number: NZ-TAKEDA-2025TUS055776

PATIENT
  Age: 26 Year
  Sex: Male

DRUGS (5)
  1. ENTYVIO [Suspect]
     Active Substance: VEDOLIZUMAB
     Indication: Colitis ulcerative
  2. Amat [Concomitant]
  3. MERCAPTOPURINE [Concomitant]
     Active Substance: MERCAPTOPURINE
  4. SUCRALFATE [Concomitant]
     Active Substance: SUCRALFATE
  5. Fmt [Concomitant]

REACTIONS (1)
  - Colitis ulcerative [Unknown]
